FAERS Safety Report 4553802-5 (Version None)
Quarter: 2004Q4

REPORT INFORMATION
  Report Type: 
  Country: None (occurrence: None)
  Receive Date: 20041227
  Receipt Date: 20041101
  Transmission Date: 20050328
  Serious: No
  Sender: FDA-Public Use
  Company Number: 04P-163-0279547-00

PATIENT
  Age: 50 Year
  Sex: Female

DRUGS (6)
  1. HUMIRA [Suspect]
     Indication: RHEUMATOID ARTHRITIS
     Dosage: 40 MG, 1 IN 2 WK, SUBCUTANEOUS
     Route: 058
     Dates: start: 20040826
  2. METHOCARBAMOL [Concomitant]
  3. INDOMETHACIN [Concomitant]
  4. AXOTAL [Concomitant]
  5. VICODIN [Concomitant]
  6. DEXTROPROPOXYPHENE HYDROCHLORIDE [Concomitant]

REACTIONS (3)
  - INJECTION SITE PRURITUS [None]
  - ONYCHOMADESIS [None]
  - PAIN IN EXTREMITY [None]
